FAERS Safety Report 23683109 (Version 1)
Quarter: 2024Q1

REPORT INFORMATION
  Report Type: Spontaneous
  Country: US (occurrence: US)
  Receive Date: 20240328
  Receipt Date: 20240328
  Transmission Date: 20240410
  Serious: No
  Sender: FDA-Public Use
  Company Number: US-BAUSCHBL-2024BNL003556

PATIENT
  Age: 79 Year
  Sex: Female

DRUGS (6)
  1. GENTAMICIN SULFATE [Suspect]
     Active Substance: GENTAMICIN SULFATE
     Indication: Postoperative care
     Route: 047
     Dates: start: 20240311, end: 20240318
  2. GENTAMICIN SULFATE [Suspect]
     Active Substance: GENTAMICIN SULFATE
     Indication: Product used for unknown indication
  3. LUMIGAN [Concomitant]
     Active Substance: BIMATOPROST
     Indication: Intraocular pressure increased
     Dosage: AT BED TIME
     Route: 065
  4. RHOPRESSA [Concomitant]
     Active Substance: NETARSUDIL MESYLATE
     Indication: Intraocular pressure increased
     Dosage: AT BED TIME
     Route: 065
  5. LOTEMAX SUSPENSION [Concomitant]
     Indication: Product used for unknown indication
     Route: 065
  6. SOOTHE (GLYCEROL;PROPYLENE GLYCOL) [Concomitant]
     Indication: Product used for unknown indication
     Route: 065

REACTIONS (5)
  - Eye pain [Unknown]
  - Discomfort [Unknown]
  - Headache [Unknown]
  - Product use in unapproved indication [Unknown]
  - Product quality issue [Unknown]

NARRATIVE: CASE EVENT DATE: 20240301
